FAERS Safety Report 21096532 (Version 1)
Quarter: 2022Q3

REPORT INFORMATION
  Report Type: Spontaneous
  Country: US (occurrence: None)
  Receive Date: 20220718
  Receipt Date: 20220718
  Transmission Date: 20221026
  Serious: No
  Sender: FDA-Public Use
  Company Number: US-Merck Healthcare KGaA-9335475

PATIENT
  Age: 75 Year
  Sex: Female

DRUGS (1)
  1. MAVENCLAD [Suspect]
     Active Substance: CLADRIBINE
     Indication: Multiple sclerosis
     Route: 048
     Dates: start: 202206

REACTIONS (1)
  - White blood cell count decreased [Unknown]

NARRATIVE: CASE EVENT DATE: 20220616
